FAERS Safety Report 9559706 (Version 3)
Quarter: 2014Q1

REPORT INFORMATION
  Report Type: Report from Study
  Country: DE (occurrence: DE)
  Receive Date: 20130927
  Receipt Date: 20140106
  Transmission Date: 20141002
  Serious: Yes (Hospitalization)
  Sender: FDA-Public Use
  Company Number: PHHO2013DE012199

PATIENT
  Sex: 0

DRUGS (4)
  1. FTY [Suspect]
     Indication: RELAPSING-REMITTING MULTIPLE SCLEROSIS
     Dosage: 0.5 MG, UNK
     Route: 048
     Dates: start: 20130701
  2. VIGANTOLETTEN [Concomitant]
     Indication: VITAMIN D DEFICIENCY
     Dosage: 1000 IE
     Dates: start: 20130614
  3. IBUPROFEN [Concomitant]
     Indication: HEADACHE
     Dosage: 600 MG, PRN
  4. KATADOLON [Concomitant]
     Indication: HEADACHE
     Dosage: 1 DF, PRN
     Dates: start: 20120511

REACTIONS (1)
  - Epilepsy [Recovered/Resolved]
